FAERS Safety Report 10103054 (Version 1)
Quarter: 2014Q2

REPORT INFORMATION
  Report Type: Spontaneous
  Country: FR (occurrence: None)
  Receive Date: 20140422
  Receipt Date: 20140422
  Transmission Date: 20141212
  Serious: Yes (Other)
  Sender: FDA-Public Use
  Company Number: FR-20140133

PATIENT
  Age: 39 Year
  Sex: 0

DRUGS (1)
  1. GADOTERIC ACID [Suspect]
     Dates: start: 20140313, end: 20140313

REACTIONS (3)
  - Laryngeal discomfort [None]
  - Urticaria [None]
  - Anaphylactic reaction [None]
